FAERS Safety Report 14307654 (Version 1)
Quarter: 2017Q4

REPORT INFORMATION
  Report Type: Spontaneous
  Country: US (occurrence: US)
  Receive Date: 20171219
  Receipt Date: 20171219
  Transmission Date: 20180321
  Serious: Yes (Hospitalization, Other)
  Sender: FDA-Public Use
  Company Number: None

PATIENT
  Sex: Female

DRUGS (6)
  1. ATORVASTATIN [Concomitant]
     Active Substance: ATORVASTATIN
  2. CELEBREX [Concomitant]
     Active Substance: CELECOXIB
  3. BACLOFEN. [Concomitant]
     Active Substance: BACLOFEN
  4. PROLIA [Suspect]
     Active Substance: DENOSUMAB
     Indication: OSTEOPOROSIS
  5. DULOXETINE. [Concomitant]
     Active Substance: DULOXETINE
  6. CALCIUM [Concomitant]
     Active Substance: CALCIUM

REACTIONS (2)
  - Cerebrovascular accident [None]
  - Aneurysm [None]

NARRATIVE: CASE EVENT DATE: 2017
